FAERS Safety Report 9157979 (Version 1)
Quarter: 2013Q1

REPORT INFORMATION
  Report Type: Spontaneous
  Country: US (occurrence: US)
  Receive Date: 20130312
  Receipt Date: 20130312
  Transmission Date: 20140127
  Serious: No
  Sender: FDA-Public Use
  Company Number: US-009507513-1303USA004631

PATIENT
  Sex: Male

DRUGS (4)
  1. REBETOL [Suspect]
     Indication: CHRONIC HEPATITIS C
     Dosage: 1200 MG, QD
     Route: 048
     Dates: start: 20120509, end: 20120801
  2. VICTRELIS [Suspect]
     Dosage: UNK
     Dates: start: 201206, end: 20120801
  3. PEGINTERFERON ALFA-2A [Suspect]
     Indication: CHRONIC HEPATITIS C
     Dosage: 180 MICROGRAM, QW
     Dates: start: 20120509, end: 20120801
  4. ALEVE [Concomitant]
     Indication: HEADACHE
     Dosage: UNK

REACTIONS (7)
  - Headache [Unknown]
  - Nausea [Unknown]
  - Dizziness [Unknown]
  - White blood cell count decreased [Unknown]
  - Red blood cell count decreased [Unknown]
  - Anaemia [Unknown]
  - Drug ineffective [Unknown]
